FAERS Safety Report 9160287 (Version 2)
Quarter: 2013Q1

REPORT INFORMATION
  Report Type: Report from Study
  Country: GB (occurrence: GB)
  Receive Date: 20130313
  Receipt Date: 20130321
  Transmission Date: 20140127
  Serious: Yes (Hospitalization, Other)
  Sender: FDA-Public Use
  Company Number: GB-ROCHE-1200488

PATIENT
  Age: 72 Year
  Sex: Male
  Weight: 64 kg

DRUGS (8)
  1. RITUXIMAB [Suspect]
     Indication: MALIGNANT LYMPHOID NEOPLASM
     Dosage: LAST DOSE PRIOR TO SAE 06/AUG/2012
     Route: 042
     Dates: start: 20120806, end: 20120903
  2. RITUXIMAB [Suspect]
     Route: 042
     Dates: start: 20120914
  3. CHLORAMBUCIL [Suspect]
     Indication: MALIGNANT LYMPHOID NEOPLASM
     Route: 048
     Dates: start: 20120806, end: 20120903
  4. CHLORAMBUCIL [Suspect]
     Route: 048
     Dates: start: 20120914
  5. FOLIC ACID [Concomitant]
     Route: 065
     Dates: start: 2012
  6. OMEPRAZOLE [Concomitant]
     Route: 065
     Dates: start: 201208
  7. FLUCONAZOLE [Concomitant]
     Route: 065
     Dates: start: 20120807, end: 20121122
  8. ACYCLOVIR [Concomitant]
     Route: 065
     Dates: start: 20120807

REACTIONS (1)
  - Insomnia [Recovered/Resolved]
